FAERS Safety Report 7573486-1 (Version None)
Quarter: 2011Q2

REPORT INFORMATION
  Report Type: 
  Country: None (occurrence: None)
  Receive Date: 20110627
  Receipt Date: 20110613
  Transmission Date: 20111010
  Serious: Yes (Hospitalization, Other)
  Sender: FDA-Public Use
  Company Number: SE-JNJFOC-20100906945

PATIENT
  Age: 31 Year
  Sex: Female
  Weight: 50 kg

DRUGS (3)
  1. FLOXACILLIN SODIUM [Concomitant]
     Indication: INFECTION
     Dosage: FREQUENCY 3
     Route: 048
     Dates: start: 20100521, end: 20100615
  2. OXYCODONE HCL [Concomitant]
     Indication: PAIN
     Route: 048
     Dates: start: 20100513, end: 20100526
  3. REMICADE [Suspect]
     Indication: COLITIS ULCERATIVE
     Route: 042
     Dates: start: 20080930, end: 20081024

REACTIONS (3)
  - COLECTOMY [None]
  - COLITIS ULCERATIVE [None]
  - POSTOPERATIVE ABSCESS [None]
